FAERS Safety Report 12565156 (Version 1)
Quarter: 2016Q3

REPORT INFORMATION
  Report Type: Spontaneous
  Country: US (occurrence: None)
  Receive Date: 20160715
  Receipt Date: 20160715
  Transmission Date: 20161109
  Serious: Yes (Hospitalization)
  Sender: FDA-Public Use
  Company Number: None

PATIENT
  Age: 43 Year
  Sex: Female
  Weight: 87.8 kg

DRUGS (1)
  1. PEMBROLIZUMAB, 25 MG/ML [Suspect]
     Active Substance: PEMBROLIZUMAB
     Indication: OESTROGEN RECEPTOR POSITIVE BREAST CANCER
     Route: 041
     Dates: start: 20160520

REACTIONS (3)
  - Biliary tract disorder [None]
  - Hepatic failure [None]
  - Ascites [None]

NARRATIVE: CASE EVENT DATE: 20160520
